FAERS Safety Report 8800621 (Version 2)
Quarter: 2015Q2

REPORT INFORMATION
  Report Type: Report from Study
  Country: US (occurrence: US)
  Receive Date: 20120921
  Receipt Date: 20150623
  Transmission Date: 20150821
  Serious: Yes (Death, Other)
  Sender: FDA-Public Use
  Company Number: US-ROCHE-1123730

PATIENT
  Age: 38 Year
  Sex: Female

DRUGS (25)
  1. AVASTIN [Suspect]
     Active Substance: BEVACIZUMAB
     Route: 042
     Dates: start: 20060315
  2. CARBOPLATIN. [Concomitant]
     Active Substance: CARBOPLATIN
     Route: 042
  3. LOMUSTINE. [Suspect]
     Active Substance: LOMUSTINE
     Indication: PRODUCT USED FOR UNKNOWN INDICATION
     Route: 065
  4. ACTIVASE [Concomitant]
     Active Substance: ALTEPLASE
     Route: 065
  5. PROTONIX (UNITED STATES) [Concomitant]
  6. DECADRON [Concomitant]
     Active Substance: DEXAMETHASONE
  7. INSULIN [Concomitant]
     Active Substance: INSULIN NOS
  8. HEPARIN [Concomitant]
     Active Substance: HEPARIN SODIUM
  9. IRINOTECAN [Concomitant]
     Active Substance: IRINOTECAN
     Route: 042
  10. DIPHENHYDRAMINE [Concomitant]
     Active Substance: DIPHENHYDRAMINE
     Route: 048
  11. KEPPRA [Concomitant]
     Active Substance: LEVETIRACETAM
  12. ACCUTANE [Concomitant]
     Active Substance: ISOTRETINOIN
  13. GRANISETRON [Concomitant]
     Active Substance: GRANISETRON
     Route: 048
  14. PROCHLORPERAZINE. [Concomitant]
     Active Substance: PROCHLORPERAZINE
     Route: 048
  15. TARCEVA [Concomitant]
     Active Substance: ERLOTINIB HYDROCHLORIDE
     Route: 065
  16. ACETAMINOPHEN. [Concomitant]
     Active Substance: ACETAMINOPHEN
     Route: 048
  17. VICODIN [Concomitant]
     Active Substance: ACETAMINOPHEN\HYDROCODONE BITARTRATE
  18. TEMODAR [Concomitant]
     Active Substance: TEMOZOLOMIDE
  19. AVASTIN [Suspect]
     Active Substance: BEVACIZUMAB
     Indication: BRAIN NEOPLASM MALIGNANT
     Route: 042
     Dates: start: 20051214
  20. AVASTIN [Suspect]
     Active Substance: BEVACIZUMAB
     Route: 042
     Dates: start: 20060201
  21. AVASTIN [Suspect]
     Active Substance: BEVACIZUMAB
     Route: 042
     Dates: start: 20060118
  22. FILGRASTIM [Concomitant]
     Active Substance: FILGRASTIM
     Route: 058
  23. ATROPINE [Concomitant]
     Active Substance: ATROPINE
     Route: 042
  24. AVASTIN [Suspect]
     Active Substance: BEVACIZUMAB
     Indication: BRAIN NEOPLASM MALIGNANT
     Route: 042
     Dates: start: 20050720
  25. LOPERAMIDE [Concomitant]
     Active Substance: LOPERAMIDE
     Route: 048

REACTIONS (17)
  - Fatigue [Unknown]
  - Hypoacusis [Unknown]
  - Seizure [Unknown]
  - Oral fungal infection [Unknown]
  - Oedema [Unknown]
  - Pancytopenia [Unknown]
  - Hemiparesis [Unknown]
  - Brain neoplasm [Unknown]
  - Rash erythematous [Unknown]
  - Mucosal inflammation [Unknown]
  - Pain [Unknown]
  - Death [Fatal]
  - Rash [Unknown]
  - Confusional state [Unknown]
  - Urinary tract infection [Unknown]
  - Dizziness [Unknown]
  - Platelet count decreased [Unknown]

NARRATIVE: CASE EVENT DATE: 200603
